FAERS Safety Report 9833057 (Version 1)
Quarter: 2014Q1

REPORT INFORMATION
  Report Type: Spontaneous
  Country: GB (occurrence: GB)
  Receive Date: 20140121
  Receipt Date: 20140121
  Transmission Date: 20141002
  Serious: Yes (Hospitalization)
  Sender: FDA-Public Use
  Company Number: PHHY2014GB003448

PATIENT
  Age: 32 Year
  Sex: Female
  Weight: 55 kg

DRUGS (2)
  1. PROPRANOLOL [Suspect]
     Indication: HYPERTHYROIDISM
     Dosage: 40 MG, BID
     Route: 048
     Dates: start: 20131212, end: 20131219
  2. CARBIMAZOLE [Suspect]
     Indication: HYPERTHYROIDISM
     Dosage: 20 MG, QD
     Route: 048
     Dates: start: 20131212, end: 20131219

REACTIONS (3)
  - Urticaria [Not Recovered/Not Resolved]
  - Pharyngeal oedema [Not Recovered/Not Resolved]
  - Mechanical urticaria [Not Recovered/Not Resolved]
